FAERS Safety Report 13894585 (Version 1)
Quarter: 2017Q3

REPORT INFORMATION
  Report Type: Spontaneous
  Country: US (occurrence: US)
  Receive Date: 20170823
  Receipt Date: 20170823
  Transmission Date: 20171127
  Serious: Yes (Other)
  Sender: FDA-Public Use
  Company Number: US-ASTRAZENECA-2017SE85573

PATIENT
  Sex: Female

DRUGS (16)
  1. ADVAIR HFA [Suspect]
     Active Substance: FLUTICASONE PROPIONATE\SALMETEROL XINAFOATE
     Indication: ASTHMA
     Route: 065
  2. ADVAIR HFA [Suspect]
     Active Substance: FLUTICASONE PROPIONATE\SALMETEROL XINAFOATE
     Indication: SINUS POLYP
     Route: 065
  3. PREDNISONE. [Suspect]
     Active Substance: PREDNISONE
     Indication: ASTHMA
     Route: 065
  4. BREO ELLIPTA [Suspect]
     Active Substance: FLUTICASONE FUROATE\VILANTEROL TRIFENATATE
     Indication: SINUS POLYP
     Route: 065
     Dates: start: 201610
  5. ALBUTEROL. [Suspect]
     Active Substance: ALBUTEROL
     Indication: ASTHMA
     Route: 065
  6. ALBUTEROL. [Suspect]
     Active Substance: ALBUTEROL
     Indication: SINUS POLYP
     Route: 065
  7. PROAIR HFA [Suspect]
     Active Substance: ALBUTEROL SULFATE
     Indication: ASTHMA
     Route: 065
  8. PREDNISONE. [Suspect]
     Active Substance: PREDNISONE
     Indication: SINUS POLYP
     Route: 065
  9. SINGULAIR [Suspect]
     Active Substance: MONTELUKAST SODIUM
     Indication: ASTHMA
     Route: 065
  10. BREO ELLIPTA [Suspect]
     Active Substance: FLUTICASONE FUROATE\VILANTEROL TRIFENATATE
     Indication: ASTHMA
     Route: 065
     Dates: start: 201610
  11. FLOVENT [Suspect]
     Active Substance: FLUTICASONE PROPIONATE
     Indication: SINUS POLYP
     Route: 065
  12. PROAIR HFA [Suspect]
     Active Substance: ALBUTEROL SULFATE
     Indication: SINUS POLYP
     Route: 065
  13. PULMICORT FLEXHALER [Suspect]
     Active Substance: BUDESONIDE
     Indication: ASTHMA
     Route: 055
  14. FLOVENT [Suspect]
     Active Substance: FLUTICASONE PROPIONATE
     Indication: ASTHMA
     Route: 065
  15. PULMICORT FLEXHALER [Suspect]
     Active Substance: BUDESONIDE
     Indication: SINUS POLYP
     Route: 055
  16. SINGULAIR [Suspect]
     Active Substance: MONTELUKAST SODIUM
     Indication: SINUS POLYP
     Route: 065

REACTIONS (9)
  - Syncope [Recovered/Resolved]
  - Dyspnoea [Unknown]
  - Seizure [Recovered/Resolved]
  - Breath sounds abnormal [Recovered/Resolved]
  - Injury [Unknown]
  - Cough [Recovered/Resolved]
  - General physical health deterioration [Unknown]
  - Insomnia [Recovered/Resolved]
  - Asthma [Unknown]

NARRATIVE: CASE EVENT DATE: 201703
